FAERS Safety Report 7451083-6 (Version None)
Quarter: 2011Q2

REPORT INFORMATION
  Report Type: 
  Country: None (occurrence: None)
  Receive Date: 20110502
  Receipt Date: 20110427
  Transmission Date: 20111010
  Serious: Yes (Other)
  Sender: FDA-Public Use
  Company Number: JP-ROCHE-773893

PATIENT
  Age: 37 Year
  Sex: Male

DRUGS (3)
  1. ELPLAT [Concomitant]
     Route: 042
     Dates: start: 20100309, end: 20110419
  2. AVASTIN [Suspect]
     Indication: LARGE INTESTINE CARCINOMA
     Route: 042
     Dates: start: 20100309, end: 20110419
  3. XELODA [Suspect]
     Indication: LARGE INTESTINE CARCINOMA
     Route: 048
     Dates: start: 20100309, end: 20110419

REACTIONS (1)
  - VENOOCCLUSIVE LIVER DISEASE [None]
